FAERS Safety Report 22311117 (Version 3)
Quarter: 2023Q2

REPORT INFORMATION
  Report Type: Report from Study
  Country: US (occurrence: US)
  Receive Date: 20230511
  Receipt Date: 20230609
  Transmission Date: 20230721
  Serious: Yes (Hospitalization)
  Sender: FDA-Public Use
  Company Number: US-ABBVIE-4762140

PATIENT
  Age: 46 Year
  Sex: Female

DRUGS (2)
  1. SKYRIZI [Suspect]
     Active Substance: RISANKIZUMAB-RZAA
     Indication: Psoriatic arthropathy
     Dosage: WEEK ZERO?ONE IN ONCE FREQUENCY?FORM STRENGTH: 150 MG
     Route: 058
     Dates: start: 20230414, end: 20230414
  2. SKYRIZI [Suspect]
     Active Substance: RISANKIZUMAB-RZAA
     Dosage: WEEK 4?ONE IN ONCE FREQUENCY?FORM STRENGTH: 150 MG
     Route: 058
     Dates: start: 20230519, end: 20230519

REACTIONS (2)
  - Diverticulitis [Recovering/Resolving]
  - Colonic abscess [Recovering/Resolving]

NARRATIVE: CASE EVENT DATE: 20230502
